FAERS Safety Report 12508946 (Version 1)
Quarter: 2016Q2

REPORT INFORMATION
  Report Type: Spontaneous
  Country: DE (occurrence: DE)
  Receive Date: 20160629
  Receipt Date: 20160629
  Transmission Date: 20160815
  Serious: Yes (Other)
  Sender: FDA-Public Use
  Company Number: GXKR2016DE002937

PATIENT

DRUGS (4)
  1. PARACETAMOL [Concomitant]
     Active Substance: ACETAMINOPHEN
     Indication: PYREXIA
     Dosage: DOSAGE UNKNOWN, 2-3 X IN GW 10-12
     Route: 048
  2. SERTRALINE [Suspect]
     Active Substance: SERTRALINE HYDROCHLORIDE
     Indication: ANXIETY DISORDER
     Dosage: 50 [MG/D ]
     Route: 048
     Dates: start: 20150627, end: 20151111
  3. MISOPROSTOL. [Concomitant]
     Active Substance: MISOPROSTOL
     Indication: LABOUR INDUCTION
     Route: 067
  4. VOMEX A [Concomitant]
     Active Substance: DIMENHYDRINATE
     Indication: VOMITING
     Dosage: 2-3 TIMES, UKN IN GW 10-12
     Route: 042

REACTIONS (1)
  - Abortion missed [Recovered/Resolved]
